FAERS Safety Report 10522110 (Version 2)
Quarter: 2015Q2

REPORT INFORMATION
  Report Type: Spontaneous
  Country: US (occurrence: US)
  Receive Date: 20141016
  Receipt Date: 20150528
  Transmission Date: 20150821
  Serious: No
  Sender: FDA-Public Use
  Company Number: US-PFIZER INC-2014281702

PATIENT
  Sex: Female

DRUGS (1)
  1. PROPANOLOL HCL [Suspect]
     Active Substance: PROPRANOLOL HYDROCHLORIDE
     Dosage: 80 MG, UNK
     Route: 048
     Dates: start: 201401, end: 201409

REACTIONS (6)
  - Insomnia [Recovering/Resolving]
  - Nightmare [Recovered/Resolved]
  - Anxiety [Recovering/Resolving]
  - Abnormal dreams [Recovering/Resolving]
  - Extrasystoles [Recovering/Resolving]
  - Palpitations [Recovering/Resolving]
